FAERS Safety Report 20643861 (Version 1)
Quarter: 2022Q1

REPORT INFORMATION
  Report Type: Spontaneous
  Country: US (occurrence: US)
  Receive Date: 20220328
  Receipt Date: 20220328
  Transmission Date: 20220424
  Serious: No
  Sender: FDA-Public Use
  Company Number: US-009507513-2203USA008517

PATIENT
  Age: 72 Year
  Sex: Female

DRUGS (5)
  1. LENVATINIB MESYLATE [Suspect]
     Active Substance: LENVATINIB MESYLATE
     Indication: Endometrial cancer
     Dosage: 2 DOSAGE FORM, DAILY
     Route: 048
     Dates: start: 202104, end: 20220305
  2. LENVATINIB MESYLATE [Suspect]
     Active Substance: LENVATINIB MESYLATE
     Dosage: 2 DOSAGE FORM, DAILY
     Route: 048
     Dates: start: 20220312
  3. KEYTRUDA [Suspect]
     Active Substance: PEMBROLIZUMAB
     Dosage: UNK
     Dates: end: 20220305
  4. PREDNISONE [Concomitant]
     Active Substance: PREDNISONE
     Dosage: UNK
     Dates: start: 20220305, end: 20220311
  5. HYDROCORTISONE [Concomitant]
     Active Substance: HYDROCORTISONE
     Dosage: UNK
     Dates: start: 20220312

REACTIONS (11)
  - Dizziness postural [Not Recovered/Not Resolved]
  - Arthralgia [Not Recovered/Not Resolved]
  - Cortisol decreased [Not Recovered/Not Resolved]
  - Headache [Not Recovered/Not Resolved]
  - Hypotension [Not Recovered/Not Resolved]
  - Hypertension [Not Recovered/Not Resolved]
  - Dizziness [Not Recovered/Not Resolved]
  - Nausea [Not Recovered/Not Resolved]
  - Gait disturbance [Not Recovered/Not Resolved]
  - Cold sweat [Not Recovered/Not Resolved]
  - Joint stiffness [Unknown]

NARRATIVE: CASE EVENT DATE: 20220301
